FAERS Safety Report 4865127-9 (Version None)
Quarter: 2005Q4

REPORT INFORMATION
  Report Type: 
  Country: None (occurrence: None)
  Receive Date: 20051219
  Receipt Date: 20051201
  Transmission Date: 20060501
  Serious: Yes (Hospitalization)
  Sender: FDA-Public Use
  Company Number: 220345

PATIENT
  Age: 63 Year
  Sex: Female
  Weight: 45.8 kg

DRUGS (4)
  1. AVASTIN [Suspect]
     Indication: COLORECTAL CANCER METASTATIC
     Dosage: 5 MG/KG, Q2W, INTRAVENOUS
     Route: 042
     Dates: start: 20050815, end: 20051130
  2. IRINOTECAN HCL [Suspect]
     Indication: COLORECTAL CANCER METASTATIC
     Dates: start: 20050815, end: 20051130
  3. FLUOROURACIL [Suspect]
     Indication: COLORECTAL CANCER METASTATIC
     Dosage: INTRVANEOUS
     Route: 042
     Dates: start: 20050815, end: 20051130
  4. LEUCOVORIN CALCIUM [Suspect]
     Indication: COLORECTAL CANCER METASTATIC
     Dosage: INTRAVNEOUS
     Route: 042
     Dates: start: 20050815, end: 20051130

REACTIONS (5)
  - ANOREXIA [None]
  - ASTHENIA [None]
  - DEHYDRATION [None]
  - NAUSEA [None]
  - VOMITING [None]
